FAERS Safety Report 6497042-1 (Version None)
Quarter: 2009Q4

REPORT INFORMATION
  Report Type: 
  Country: None (occurrence: None)
  Receive Date: 20091215
  Receipt Date: 20090204
  Transmission Date: 20100525
  Serious: No
  Sender: FDA-Public Use
  Company Number: A0766864A

PATIENT
  Age: 55 Year
  Sex: Male

DRUGS (4)
  1. AVODART [Suspect]
     Indication: BENIGN PROSTATIC HYPERPLASIA
     Dosage: 1CAP PER DAY
     Route: 048
     Dates: start: 20090102
  2. LIPITOR [Concomitant]
  3. ASPIRIN [Concomitant]
  4. VALIUM [Concomitant]

REACTIONS (3)
  - MENTAL DISORDER [None]
  - PENILE SIZE REDUCED [None]
  - SEMEN VOLUME DECREASED [None]
